FAERS Safety Report 6819605-3 (Version None)
Quarter: 2010Q3

REPORT INFORMATION
  Report Type: 
  Country: None (occurrence: None)
  Receive Date: 20100701
  Receipt Date: 20100107
  Transmission Date: 20110219
  Serious: No
  Sender: FDA-Public Use
  Company Number: US-TEVA-220074USA

PATIENT

DRUGS (2)
  1. AZILECT [Suspect]
  2. STALEVO 100 [Suspect]

REACTIONS (1)
  - CARDIAC DISORDER [None]
